FAERS Safety Report 17930460 (Version 2)
Quarter: 2021Q1

REPORT INFORMATION
  Report Type: Spontaneous
  Country: US (occurrence: US)
  Receive Date: 20200623
  Receipt Date: 20210331
  Transmission Date: 20210419
  Serious: Yes (Other)
  Sender: FDA-Public Use
  Company Number: US-TEVA-2020-US-1790573

PATIENT

DRUGS (11)
  1. IRBESARTAN LUPIN [Suspect]
     Active Substance: IRBESARTAN
     Indication: HYPERTENSION
     Route: 065
     Dates: start: 20150721, end: 20150820
  2. LOSARTAN LEGACY PHARMACEUTICALS [Suspect]
     Active Substance: LOSARTAN
     Route: 065
     Dates: start: 20150216, end: 20150417
  3. LOSARTAN LEGACY PHARMACEUTICALS [Suspect]
     Active Substance: LOSARTAN
     Route: 065
     Dates: start: 20150827, end: 20151231
  4. LOSARTAN LEGACY PHARMACEUTICALS [Suspect]
     Active Substance: LOSARTAN
     Route: 065
     Dates: start: 20161203, end: 20170607
  5. LOSARTAN LEGACY PHARMACEUTICALS [Suspect]
     Active Substance: LOSARTAN
     Indication: HYPERTENSION
     Route: 065
     Dates: start: 20131101, end: 20141106
  6. LOSARTAN LEGACY PHARMACEUTICALS [Suspect]
     Active Substance: LOSARTAN
     Route: 065
     Dates: start: 20150515, end: 20150813
  7. LOSARTAN LEGACY PHARMACEUTICALS [Suspect]
     Active Substance: LOSARTAN
     Route: 065
     Dates: start: 20160203, end: 20161018
  8. LOSARTAN AUROBINDO [Suspect]
     Active Substance: LOSARTAN
     Route: 065
     Dates: start: 20160105, end: 20160204
  9. LOSARTAN ZYDUS [Suspect]
     Active Substance: LOSARTAN POTASSIUM
     Indication: HYPERTENSION
     Route: 065
     Dates: start: 20161103, end: 20161203
  10. LOSARTAN AUROBINDO [Suspect]
     Active Substance: LOSARTAN
     Indication: HYPERTENSION
     Route: 065
     Dates: start: 20150406, end: 20150506
  11. VALSARTAN SOLCO [Suspect]
     Active Substance: VALSARTAN
     Indication: HYPERTENSION
     Route: 065
     Dates: start: 20171012, end: 20171111

REACTIONS (3)
  - Gastrointestinal carcinoma [Unknown]
  - Malignant peritoneal neoplasm [Unknown]
  - Cervix carcinoma [Unknown]
